FAERS Safety Report 4336626-3 (Version None)
Quarter: 2004Q2

REPORT INFORMATION
  Report Type: 
  Country: None (occurrence: None)
  Receive Date: 20040408
  Receipt Date: 20040326
  Transmission Date: 20050107
  Serious: Yes (Death)
  Sender: FDA-Public Use
  Company Number: KDL024686

PATIENT
  Age: 81 Year
  Sex: Female
  Weight: 53.1 kg

DRUGS (9)
  1. EPOGEN [Suspect]
     Indication: ANAEMIA OF MALIGNANT DISEASE
     Dosage: 40000 U, WEEKLY, SC
     Route: 058
     Dates: start: 20030101, end: 20030601
  2. QUINAPRIL HYDROCHLORIDE [Concomitant]
  3. IMMUNOGLOBULIN HUMAN NORMAL [Concomitant]
  4. OS-CAL [Concomitant]
  5. METOPROLOL [Concomitant]
  6. TOCOPHEROL CONCENTRATE CAP [Concomitant]
  7. ZINC [Concomitant]
  8. MULTIVITAMIN [Concomitant]
  9. VICODIN [Concomitant]

REACTIONS (10)
  - ASTHENIA [None]
  - BONE PAIN [None]
  - CHEST PAIN [None]
  - DYSPNOEA [None]
  - FATIGUE [None]
  - JOINT SWELLING [None]
  - MUSCLE CRAMP [None]
  - PLATELET COUNT DECREASED [None]
  - THERAPEUTIC RESPONSE DECREASED [None]
  - WHITE BLOOD CELL COUNT DECREASED [None]
